FAERS Safety Report 7093793-9 (Version None)
Quarter: 2010Q4

REPORT INFORMATION
  Report Type: 
  Country: None (occurrence: None)
  Receive Date: 20101110
  Receipt Date: 20101101
  Transmission Date: 20110411
  Serious: Yes (Hospitalization)
  Sender: FDA-Public Use
  Company Number: US-BAXTER-2010BH025344

PATIENT
  Age: 48 Year
  Sex: Male
  Weight: 75 kg

DRUGS (1)
  1. DIANEAL [Suspect]
     Indication: PERITONEAL DIALYSIS
     Route: 033

REACTIONS (4)
  - LABORATORY TEST ABNORMAL [None]
  - NAUSEA [None]
  - PYREXIA [None]
  - VOMITING [None]
